FAERS Safety Report 6080984-9 (Version None)
Quarter: 2009Q1

REPORT INFORMATION
  Report Type: 
  Country: None (occurrence: None)
  Receive Date: 20090217
  Receipt Date: 20090203
  Transmission Date: 20090719
  Serious: Yes (Other)
  Sender: FDA-Public Use
  Company Number: ZM-B.I. PHARMACEUTICALS,INC./RIDGEFIELD-2009-DE-01195GD

PATIENT

DRUGS (2)
  1. NEVIRAPINE [Suspect]
     Indication: PROPHYLAXIS AGAINST HIV INFECTION
     Route: 064
  2. NEVIRAPINE [Suspect]
     Indication: HUMAN IMMUNODEFICIENCY VIRUS TRANSMISSION
     Dosage: .6ML
     Route: 048

REACTIONS (3)
  - DRUG EXPOSURE VIA BREAST MILK [None]
  - HUMAN IMMUNODEFICIENCY VIRUS TRANSMISSION [None]
  - MATERNAL DRUGS AFFECTING FOETUS [None]
